FAERS Safety Report 24182725 (Version 1)
Quarter: 2024Q3

REPORT INFORMATION
  Report Type: Report from Study
  Country: GB (occurrence: GB)
  Receive Date: 20240807
  Receipt Date: 20240807
  Transmission Date: 20241016
  Serious: Yes (Other)
  Sender: SANDOZ
  Company Number: GB-SANDOZ-SDZ2024GB057357

PATIENT
  Sex: Female

DRUGS (1)
  1. HYRIMOZ [Suspect]
     Active Substance: ADALIMUMAB-ADAZ
     Indication: Psoriatic arthropathy
     Dosage: 40 MG, Q2W (40 MG/0.4 ML SOLUTION FOR INJECTION IN PRE-FILLED PEN)
     Route: 058

REACTIONS (5)
  - Psoriatic arthropathy [Unknown]
  - Tuberculosis [Not Recovered/Not Resolved]
  - Solar lentigo [Not Recovered/Not Resolved]
  - Illness [Not Recovered/Not Resolved]
  - Skin exfoliation [Unknown]
